FAERS Safety Report 13024386 (Version 1)
Quarter: 2016Q4

REPORT INFORMATION
  Report Type: Spontaneous
  Country: US (occurrence: US)
  Receive Date: 20161213
  Receipt Date: 20161213
  Transmission Date: 20170207
  Serious: Yes (Death)
  Sender: FDA-Public Use
  Company Number: US-ACTELION-A-NJ2016-146604

PATIENT
  Age: 62 Year
  Sex: Male

DRUGS (10)
  1. TYVASO [Concomitant]
     Active Substance: TREPROSTINIL
  2. BUMETANIDE. [Concomitant]
     Active Substance: BUMETANIDE
  3. TYLENOL PM [Concomitant]
     Active Substance: ACETAMINOPHEN\DIPHENHYDRAMINE
  4. MELATONIN [Concomitant]
     Active Substance: MELATONIN
  5. CENTRUM SILVER [Concomitant]
     Active Substance: MINERALS\VITAMINS
  6. TOPROL XL [Concomitant]
     Active Substance: METOPROLOL SUCCINATE
  7. ZYRTEC [Concomitant]
     Active Substance: CETIRIZINE HYDROCHLORIDE
  8. TRACLEER [Suspect]
     Active Substance: BOSENTAN
     Indication: PULMONARY ARTERIAL HYPERTENSION
     Dosage: 125 MG, UNK
     Route: 048
     Dates: start: 20030417
  9. ADCIRCA [Concomitant]
     Active Substance: TADALAFIL
  10. COUMADIN [Concomitant]
     Active Substance: WARFARIN SODIUM

REACTIONS (1)
  - Death [Fatal]

NARRATIVE: CASE EVENT DATE: 20161203
